FAERS Safety Report 11702393 (Version 5)
Quarter: 2019Q2

REPORT INFORMATION
  Report Type: Spontaneous
  Country: US (occurrence: US)
  Receive Date: 20151105
  Receipt Date: 20190401
  Transmission Date: 20190711
  Serious: Yes (Hospitalization, Other)
  Sender: FDA-Public Use
  Company Number: US-DSJP-DSU-2015-134277

PATIENT

DRUGS (4)
  1. TRIBENZOR [Suspect]
     Active Substance: AMLODIPINE BESYLATE\HYDROCHLOROTHIAZIDE\OLMESARTAN MEDOXOMIL
     Indication: HYPERTENSION
     Dosage: 40-10-25 MG, UNK
     Dates: start: 20130413, end: 201502
  2. BENICAR [Suspect]
     Active Substance: OLMESARTAN MEDOXOMIL
     Dosage: UNK
     Dates: start: 20060117, end: 201502
  3. BENICAR [Suspect]
     Active Substance: OLMESARTAN MEDOXOMIL
     Indication: HYPERTENSION
     Dosage: 20 MG, UNK
     Dates: start: 201210, end: 201411
  4. BENICAR HCT [Suspect]
     Active Substance: HYDROCHLOROTHIAZIDE\OLMESARTAN MEDOXOMIL
     Indication: HYPERTENSION
     Dosage: 40-25 MG, QD
     Route: 048
     Dates: start: 20060117

REACTIONS (16)
  - Barrett^s oesophagus [Recovering/Resolving]
  - Gastrooesophageal reflux disease [Unknown]
  - Splenic rupture [Unknown]
  - Hiatus hernia [Not Recovered/Not Resolved]
  - Pelvic abscess [Unknown]
  - Sprue-like enteropathy [Recovering/Resolving]
  - Polyp [Unknown]
  - Respiration abnormal [Recovered/Resolved]
  - Hepatic steatosis [Unknown]
  - Abdominal abscess [Recovered/Resolved]
  - Diverticulum intestinal [Unknown]
  - Dizziness [Not Recovered/Not Resolved]
  - Rectal haemorrhage [Unknown]
  - Ileus [Unknown]
  - Abdominal hernia [Recovered/Resolved]
  - Anxiety [Unknown]

NARRATIVE: CASE EVENT DATE: 200602
